FAERS Safety Report 8618518-4 (Version None)
Quarter: 2012Q3

REPORT INFORMATION
  Report Type: 
  Country: None (occurrence: None)
  Receive Date: 20120814
  Receipt Date: 20120814
  Transmission Date: 20120928
  Serious: Yes (Hospitalization)
  Sender: FDA-Public Use
  Company Number: None

PATIENT
  Sex: Female
  Weight: 67.75 kg

DRUGS (3)
  1. MELPHALAN HYDROCHLORIDE [Suspect]
     Dosage: 56 MG
     Dates: start: 20120809
  2. DEXAMETHASONE [Suspect]
     Dosage: 80 MG
     Dates: start: 20120810
  3. VELCADE [Suspect]
     Dosage: 4,48 MG
     Dates: start: 20120809

REACTIONS (2)
  - ARTERIAL THROMBOSIS LIMB [None]
  - ILIAC ARTERY THROMBOSIS [None]
